FAERS Safety Report 9303312 (Version 2)
Quarter: 2013Q2

REPORT INFORMATION
  Report Type: Report from Study
  Country: US (occurrence: US)
  Receive Date: 20130522
  Receipt Date: 20130527
  Transmission Date: 20140414
  Serious: Yes (Other)
  Sender: FDA-Public Use
  Company Number: US-009507513-1305USA012609

PATIENT
  Age: 45 Year
  Sex: Female

DRUGS (3)
  1. REBETOL [Suspect]
     Indication: CHRONIC HEPATITIS C
     Dosage: 1200 MG
     Route: 048
     Dates: start: 20130329
  2. VICTRELIS [Suspect]
     Indication: CHRONIC HEPATITIS C
     Dosage: 3 IN 1 D
     Route: 048
     Dates: start: 20130502
  3. PEGASYS [Suspect]
     Indication: CHRONIC HEPATITIS C
     Dosage: 180 MICROGRAM, QW
     Dates: start: 20130329

REACTIONS (16)
  - Dehydration [Unknown]
  - Nausea [Unknown]
  - Diarrhoea [Unknown]
  - Dyspnoea [Unknown]
  - Headache [Unknown]
  - Cough [Unknown]
  - Myalgia [Unknown]
  - Dizziness [Unknown]
  - Dizziness [Unknown]
  - Visual impairment [Unknown]
  - Vision blurred [Unknown]
  - Yellow skin [Unknown]
  - Ocular icterus [Unknown]
  - Pain [Unknown]
  - Vomiting [Unknown]
  - Migraine [Unknown]
